FAERS Safety Report 5034450-X (Version None)
Quarter: 2006Q2

REPORT INFORMATION
  Report Type: 
  Country: None (occurrence: None)
  Receive Date: 20060626
  Receipt Date: 20060616
  Transmission Date: 20061013
  Serious: Yes (Death, Other)
  Sender: FDA-Public Use
  Company Number: PHEH2006US07899

PATIENT
  Age: 50 Year
  Sex: Female

DRUGS (1)
  1. ZOMETA [Suspect]
     Indication: LUNG CANCER METASTATIC
     Dosage: 4 MG EVERY 3-4 WEEKS

REACTIONS (4)
  - DEATH [None]
  - OSTEONECROSIS [None]
  - SWELLING [None]
  - TOOTH EXTRACTION [None]
